FAERS Safety Report 4304037-2 (Version None)
Quarter: 2004Q1

REPORT INFORMATION
  Report Type: 
  Country: None (occurrence: None)
  Receive Date: 20040223
  Receipt Date: 20031030
  Transmission Date: 20041129
  Serious: No
  Sender: FDA-Public Use
  Company Number: PHEH2003US09995

PATIENT
  Age: 61 Year
  Sex: Female

DRUGS (5)
  1. ZELNORM [Suspect]
     Indication: IRRITABLE BOWEL SYNDROME
     Dosage: 6 MG, BID
  2. AMLODIPINE BESYLATE [Concomitant]
  3. LIPITOR [Concomitant]
  4. HORMONES (HORMONES) [Concomitant]
  5. MULTIVITAMIN [Concomitant]

REACTIONS (2)
  - GINGIVAL PAIN [None]
  - SWELLING FACE [None]
